FAERS Safety Report 14849196 (Version 1)
Quarter: 2018Q2

REPORT INFORMATION
  Report Type: Report from Study
  Country: CN (occurrence: CN)
  Receive Date: 20180504
  Receipt Date: 20180504
  Transmission Date: 20180711
  Serious: Yes (Hospitalization)
  Sender: FDA-Public Use
  Company Number: PHHY2016CN041130

PATIENT
  Age: 25 Year
  Sex: Male
  Weight: 57 kg

DRUGS (14)
  1. TACROLIMUS. [Concomitant]
     Active Substance: TACROLIMUS
     Dosage: 5.5 MG, UNK
     Route: 065
     Dates: start: 20151123, end: 20151127
  2. MYFORTIC [Suspect]
     Active Substance: MYCOPHENOLATE SODIUM
     Dosage: 1080 MG, QD
     Route: 048
     Dates: start: 20151106, end: 20160127
  3. MYFORTIC [Suspect]
     Active Substance: MYCOPHENOLATE SODIUM
     Dosage: 720 MG, QD
     Route: 048
     Dates: start: 20160128
  4. TACROLIMUS. [Concomitant]
     Active Substance: TACROLIMUS
     Dosage: 7.5 MG, UNK
     Route: 065
     Dates: start: 20151106, end: 20151122
  5. TACROLIMUS. [Concomitant]
     Active Substance: TACROLIMUS
     Dosage: 3.5 MG, (EVEN NUMBERED DAYS) UNK
     Route: 065
     Dates: start: 20151128
  6. TACROLIMUS. [Concomitant]
     Active Substance: TACROLIMUS
     Dosage: 6.5 MG, UNK
     Route: 065
     Dates: start: 20151104
  7. TACROLIMUS. [Concomitant]
     Active Substance: TACROLIMUS
     Dosage: 3 MG, UNK (ODD DAYS)
     Route: 065
     Dates: start: 20151129
  8. MMF [Concomitant]
     Active Substance: MYCOPHENOLATE MOFETIL
     Indication: RENAL TRANSPLANT
     Dosage: 1 G, UNK
     Route: 065
     Dates: start: 20151102, end: 20151105
  9. MYFORTIC [Suspect]
     Active Substance: MYCOPHENOLATE SODIUM
     Indication: RENAL TRANSPLANT
     Dosage: 1080 MG, QD
     Route: 048
     Dates: start: 20151031, end: 20151101
  10. TACROLIMUS. [Concomitant]
     Active Substance: TACROLIMUS
     Indication: RENAL TRANSPLANT
     Dosage: 3 MG, UNK
     Route: 065
     Dates: start: 20151031
  11. CALCIUM + VITAMIN D [Concomitant]
     Active Substance: CALCIUM\VITAMIN D
     Indication: BONE LOSS
     Route: 065
  12. CALCITONIN [Concomitant]
     Active Substance: CALCITONIN
     Indication: BONE LOSS
     Route: 065
  13. TACROLIMUS. [Concomitant]
     Active Substance: TACROLIMUS
     Dosage: 8 MG, UNK
     Route: 065
     Dates: start: 20151105
  14. TACROLIMUS. [Concomitant]
     Active Substance: TACROLIMUS
     Dosage: 6 MG, UNK
     Route: 065
     Dates: start: 20151101, end: 20151103

REACTIONS (5)
  - Diarrhoea [Recovered/Resolved]
  - Upper respiratory tract infection [Recovered/Resolved]
  - Gastroenteritis [Recovered/Resolved]
  - Abdominal pain [Recovered/Resolved]
  - Carditis [Recovered/Resolved]

NARRATIVE: CASE EVENT DATE: 20160121
